FAERS Safety Report 7451906-0 (Version None)
Quarter: 2011Q2

REPORT INFORMATION
  Report Type: 
  Country: None (occurrence: None)
  Receive Date: 20110502
  Receipt Date: 20110428
  Transmission Date: 20111010
  Serious: Yes (Hospitalization)
  Sender: FDA-Public Use
  Company Number: GB-MERCK-1003GBR00084

PATIENT
  Age: 84 Year
  Sex: Male

DRUGS (5)
  1. VARDENAFIL DIHYDROCHLORIDE [Concomitant]
     Route: 065
  2. ACETAMINOPHEN [Concomitant]
     Route: 048
  3. JANUVIA [Suspect]
     Indication: TYPE 2 DIABETES MELLITUS
     Route: 048
  4. SILDENAFIL CITRATE [Concomitant]
     Route: 065
  5. GLICLAZIDE [Suspect]
     Route: 048

REACTIONS (15)
  - MUSCULOSKELETAL STIFFNESS [None]
  - THERAPEUTIC RESPONSE DECREASED [None]
  - SEXUAL DYSFUNCTION [None]
  - ERECTILE DYSFUNCTION [None]
  - JOINT STIFFNESS [None]
  - MOVEMENT DISORDER [None]
  - PAIN IN EXTREMITY [None]
  - OEDEMA PERIPHERAL [None]
  - DYSPEPSIA [None]
  - ARTHRITIS [None]
  - GRIP STRENGTH [None]
  - ARTHRALGIA [None]
  - BONE EROSION [None]
  - DRUG INTERACTION [None]
  - RASH [None]
